FAERS Safety Report 12134547 (Version 1)
Quarter: 2016Q1

REPORT INFORMATION
  Report Type: Spontaneous
  Country: TN (occurrence: TN)
  Receive Date: 20160301
  Receipt Date: 20160301
  Transmission Date: 20160526
  Serious: Yes (Hospitalization, Other)
  Sender: FDA-Public Use
  Company Number: TN-NORTHSTAR HEALTHCARE HOLDINGS-TN-2016NSR001076

PATIENT

DRUGS (1)
  1. ALLOPURINOL. [Suspect]
     Active Substance: ALLOPURINOL
     Indication: HYPERURICAEMIA
     Dosage: UNK

REACTIONS (19)
  - Drug reaction with eosinophilia and systemic symptoms [Recovered/Resolved]
  - Histiocytosis haematophagic [Recovered/Resolved]
  - Hypertension [Recovered/Resolved]
  - Pyrexia [Recovered/Resolved]
  - Hyperferritinaemia [Recovered/Resolved]
  - Heart rate increased [Recovered/Resolved]
  - Hypertriglyceridaemia [Recovered/Resolved]
  - Blood lactate dehydrogenase increased [Recovered/Resolved]
  - Face oedema [Recovered/Resolved]
  - Hepatocellular injury [Recovered/Resolved]
  - Lymphadenopathy [Recovered/Resolved]
  - Rash generalised [Recovered/Resolved]
  - Thrombocytopenia [Recovered/Resolved]
  - Pulse abnormal [Recovered/Resolved]
  - Vomiting [Recovered/Resolved]
  - Hypernatraemia [Recovered/Resolved]
  - Renal failure [Recovered/Resolved]
  - Eosinophilia [Recovered/Resolved]
  - Anaemia [Recovered/Resolved]
